FAERS Safety Report 7506329-2 (Version None)
Quarter: 2011Q2

REPORT INFORMATION
  Report Type: 
  Country: None (occurrence: None)
  Receive Date: 20110526
  Receipt Date: 20110216
  Transmission Date: 20111010
  Serious: No
  Sender: FDA-Public Use
  Company Number: US-ABBOTT-11P-163-0706688-00

PATIENT
  Sex: Female
  Weight: 63.56 kg

DRUGS (5)
  1. HYDROCODONE BITARTRATE [Concomitant]
     Indication: SPINAL FRACTURE
  2. ZEMPLAR [Suspect]
     Indication: RENAL IMPAIRMENT
  3. CARBIDOPA [Concomitant]
     Indication: PARKINSON'S DISEASE
  4. BYSTOLIC [Concomitant]
     Indication: HYPERTENSION
  5. ZEMPLAR [Suspect]
     Indication: HYPERTHYROIDISM
     Route: 048
     Dates: start: 20110129

REACTIONS (2)
  - DEPRESSION [None]
  - FATIGUE [None]
